FAERS Safety Report 19727458 (Version 2)
Quarter: 2023Q1

REPORT INFORMATION
  Report Type: Spontaneous
  Country: DE (occurrence: DE)
  Receive Date: 20210819
  Receipt Date: 20230206
  Transmission Date: 20230417
  Serious: Yes (Other)
  Sender: FDA-Public Use
  Company Number: DE-NOVARTISPH-NVSC2021DE186991

PATIENT
  Age: 3 Month
  Sex: Female

DRUGS (2)
  1. TRAMETINIB [Suspect]
     Active Substance: TRAMETINIB
     Indication: Cardiac hypertrophy
     Dosage: UNK (STEADY STATE, 0.02-0.03 MG/KG/DAY)
     Route: 065
  2. PROPRANOLOL [Suspect]
     Active Substance: PROPRANOLOL HYDROCHLORIDE
     Indication: Cardiac hypertrophy
     Dosage: UNK
     Route: 065

REACTIONS (6)
  - Cardiac failure [Unknown]
  - Cardiac hypertrophy [Unknown]
  - Rash [Recovered/Resolved]
  - Alopecia [Recovered/Resolved]
  - General physical health deterioration [Unknown]
  - Product use in unapproved indication [Unknown]
